FAERS Safety Report 6298082-8 (Version None)
Quarter: 2009Q3

REPORT INFORMATION
  Report Type: 
  Country: None (occurrence: None)
  Receive Date: 20090804
  Receipt Date: 20090804
  Transmission Date: 20100115
  Serious: Yes (Other)
  Sender: FDA-Public Use
  Company Number: None

PATIENT
  Age: 60 Year
  Sex: Male
  Weight: 83.9154 kg

DRUGS (2)
  1. ZICAM NOSE GEL [Suspect]
     Indication: NASOPHARYNGITIS
     Dosage: OFF AND ON FOR 11 MONTHS
     Dates: start: 20080615, end: 20090415
  2. . [Concomitant]

REACTIONS (1)
  - HYPOSMIA [None]
